FAERS Safety Report 23680885 (Version 1)
Quarter: 2024Q1

REPORT INFORMATION
  Report Type: Other
  Country: US (occurrence: None)
  Receive Date: 20240328
  Receipt Date: 20240328
  Transmission Date: 20240410
  Serious: Yes (Other)
  Sender: FDA-Public Use
  Company Number: US-ROCHE-3528582

PATIENT
  Age: 51 Year
  Sex: Female

DRUGS (14)
  1. OCREVUS [Suspect]
     Active Substance: OCRELIZUMAB
     Indication: Relapsing multiple sclerosis
     Route: 042
  2. OCREVUS [Suspect]
     Active Substance: OCRELIZUMAB
     Indication: Relapsing-remitting multiple sclerosis
  3. ACETAMINOPHEN [Concomitant]
     Active Substance: ACETAMINOPHEN
  4. FAMOTIDINE [Concomitant]
     Active Substance: FAMOTIDINE
  5. METHYLPREDNISOLONE [Concomitant]
     Active Substance: METHYLPREDNISOLONE
  6. DIPHENHYDRAMINE [Concomitant]
     Active Substance: DIPHENHYDRAMINE
  7. DALFAMPRIDINE [Concomitant]
     Active Substance: DALFAMPRIDINE
  8. ESTRADIOL [Concomitant]
     Active Substance: ESTRADIOL
  9. GABAPENTIN [Concomitant]
     Active Substance: GABAPENTIN
  10. METFORMIN [Concomitant]
     Active Substance: METFORMIN HYDROCHLORIDE
  11. TIZANIDINE [Concomitant]
     Active Substance: TIZANIDINE
  12. AMOXICILLIN [Concomitant]
     Active Substance: AMOXICILLIN
  13. FLUTICASONE PROPIONATE [Concomitant]
     Active Substance: FLUTICASONE PROPIONATE
  14. FLUOXETINE HYDROCHLORIDE [Concomitant]
     Active Substance: FLUOXETINE HYDROCHLORIDE

REACTIONS (36)
  - Lower limb fracture [Unknown]
  - Hypertension [Unknown]
  - Diabetes mellitus [Unknown]
  - Muscular weakness [Unknown]
  - Vision blurred [Unknown]
  - Asthenia [Unknown]
  - Dysarthria [Unknown]
  - Neuralgia [Unknown]
  - Anxiety [Unknown]
  - Fatigue [Unknown]
  - Depression [Unknown]
  - Colitis microscopic [Unknown]
  - Mean cell haemoglobin concentration decreased [Unknown]
  - Eosinophil count increased [Unknown]
  - Blood albumin decreased [Unknown]
  - Albumin globulin ratio decreased [Unknown]
  - Glycosylated haemoglobin increased [Unknown]
  - JC polyomavirus test positive [Unknown]
  - Fall [Unknown]
  - Emotional distress [Unknown]
  - Insomnia [Unknown]
  - Psychogenic movement disorder [Unknown]
  - Nausea [Unknown]
  - Dizziness [Unknown]
  - Abdominal discomfort [Unknown]
  - Ataxia [Unknown]
  - Abdominal injury [Unknown]
  - Neoplasm [Unknown]
  - Restless legs syndrome [Unknown]
  - Pain [Unknown]
  - Tremor [Unknown]
  - Frustration tolerance decreased [Unknown]
  - Inflammatory bowel disease [Unknown]
  - Overweight [Unknown]
  - Hyperreflexia [Unknown]
  - Terminal ileitis [Unknown]
